FAERS Safety Report 12969027 (Version 2)
Quarter: 2016Q4

REPORT INFORMATION
  Report Type: Spontaneous
  Country: US (occurrence: US)
  Receive Date: 20161123
  Receipt Date: 20161230
  Transmission Date: 20170207
  Serious: Yes (Death, Hospitalization, Other)
  Sender: FDA-Public Use
  Company Number: US-ASTELLAS-2016US046224

PATIENT
  Sex: Male

DRUGS (1)
  1. XTANDI [Suspect]
     Active Substance: ENZALUTAMIDE
     Indication: HORMONE-REFRACTORY PROSTATE CANCER
     Route: 065
     Dates: start: 20160812, end: 20160912

REACTIONS (7)
  - Blood sodium decreased [Unknown]
  - Treatment noncompliance [Unknown]
  - Cardio-respiratory arrest [Fatal]
  - Staphylococcal sepsis [Unknown]
  - Malignant neoplasm progression [Unknown]
  - Blood potassium decreased [Unknown]
  - Metabolic encephalopathy [Unknown]
